FAERS Safety Report 5267645-0 (Version None)
Quarter: 2007Q1

REPORT INFORMATION
  Report Type: 
  Country: None (occurrence: None)
  Receive Date: 20070316
  Receipt Date: 20070305
  Transmission Date: 20070707
  Serious: Yes (Life-Threatening)
  Sender: FDA-Public Use
  Company Number: GB-MERCK-0703GBR00029

PATIENT
  Age: 68 Year
  Sex: Male
  Weight: 72 kg

DRUGS (11)
  1. INVANZ [Suspect]
     Indication: PNEUMONIA
     Route: 042
     Dates: start: 20070119, end: 20070124
  2. METHOTREXATE [Suspect]
     Indication: NON-HODGKIN'S LYMPHOMA
     Route: 042
     Dates: start: 20070123, end: 20070124
  3. EPIRUBICIN HYDROCHLORIDE [Concomitant]
     Indication: NON-HODGKIN'S LYMPHOMA
     Route: 042
     Dates: start: 20070103
  4. ETOPOSIDE [Concomitant]
     Indication: NON-HODGKIN'S LYMPHOMA
     Route: 042
     Dates: start: 20070103
  5. FOLINIC ACID [Concomitant]
     Route: 042
     Dates: start: 20070124
  6. IFOSFAMIDE [Concomitant]
     Indication: NON-HODGKIN'S LYMPHOMA
     Route: 042
     Dates: start: 20070103, end: 20070104
  7. MESNA [Concomitant]
     Route: 042
     Dates: start: 20070103, end: 20070105
  8. OMEPRAZOLE [Concomitant]
     Route: 048
  9. ACETAMINOPHEN [Concomitant]
     Route: 048
  10. TAZOCIN [Concomitant]
     Indication: PNEUMONIA
     Route: 042
     Dates: start: 20070117, end: 20070119
  11. TINZAPARIN SODIUM [Concomitant]
     Route: 058
     Dates: start: 20070117, end: 20070124

REACTIONS (5)
  - BONE MARROW FAILURE [None]
  - DRUG CLEARANCE DECREASED [None]
  - DRUG INTERACTION [None]
  - RENAL IMPAIRMENT [None]
  - STOMATITIS [None]
